FAERS Safety Report 20465864 (Version 2)
Quarter: 2022Q1

REPORT INFORMATION
  Report Type: Spontaneous
  Country: AU (occurrence: AU)
  Receive Date: 20220212
  Receipt Date: 20220216
  Transmission Date: 20220423
  Serious: Yes (Other)
  Sender: FDA-Public Use
  Company Number: AU-NOVARTISPH-NVSC2022AU029820

PATIENT
  Age: 55 Year
  Sex: Female

DRUGS (5)
  1. FINGOLIMOD [Suspect]
     Active Substance: FINGOLIMOD
     Indication: Multiple sclerosis
     Dosage: UNK
     Route: 065
  2. DIMETHYL FUMARATE [Suspect]
     Active Substance: DIMETHYL FUMARATE
     Indication: Multiple sclerosis
     Dosage: UNK
     Route: 065
  3. TERIFLUNOMIDE [Suspect]
     Active Substance: TERIFLUNOMIDE
     Indication: Multiple sclerosis
     Dosage: UNK
     Route: 065
  4. BACLOFEN [Suspect]
     Active Substance: BACLOFEN
     Indication: Back pain
     Dosage: UNK
     Route: 065
  5. VITAMIN D [Concomitant]
     Active Substance: VITAMIN D NOS
     Indication: Back pain
     Dosage: UNK
     Route: 065

REACTIONS (12)
  - Paraparesis [Unknown]
  - Expanded disability status scale score increased [Unknown]
  - Pruritus [Unknown]
  - Influenza like illness [Unknown]
  - Ataxia [Unknown]
  - Needle fatigue [Unknown]
  - Flushing [Unknown]
  - Drug intolerance [Unknown]
  - Micturition urgency [Unknown]
  - Central nervous system lesion [Unknown]
  - Infection [Unknown]
  - Diarrhoea [Unknown]
